FAERS Safety Report 9461402 (Version 1)
Quarter: 2013Q3

REPORT INFORMATION
  Report Type: Spontaneous
  Country: US (occurrence: None)
  Receive Date: 20130814
  Receipt Date: 20130814
  Transmission Date: 20140515
  Serious: Yes (Hospitalization, Other)
  Sender: FDA-Public Use
  Company Number: None

PATIENT
  Age: 68 Year
  Sex: Female
  Weight: 68.95 kg

DRUGS (14)
  1. DIAZEPAM [Suspect]
     Indication: INSOMNIA
     Dosage: ONE-TWO PILLS NAC MOUTH?3 Y AGO
     Route: 048
  2. OXCARBAZEPINE [Suspect]
     Indication: BIPOLAR DISORDER
     Dosage: 3 PILLS DAY ?2 Y AGO
     Route: 048
  3. LORATADINE SANDOZ [Concomitant]
     Dosage: 1 PILL DAY?3 Y AGO
     Route: 048
  4. EPOGEN AMGEN [Concomitant]
     Dosage: 1 INJ MONTH
     Route: 058
  5. NIFEDIPINE 60 BID. 11-15 MYLAN [Concomitant]
  6. CLONIDINE [Concomitant]
  7. VITAMIN D3 [Concomitant]
  8. CALCITRIOL [Concomitant]
  9. NABIC [Concomitant]
  10. OXYCARBATISOTID [Concomitant]
  11. PRAVASTATIN [Concomitant]
  12. GNOC/APOGODERM [Concomitant]
  13. OMEGA FISH OIL [Concomitant]
  14. VALIUM [Concomitant]

REACTIONS (3)
  - Fall [None]
  - Diarrhoea [None]
  - Muscle spasms [None]
